FAERS Safety Report 23197477 (Version 1)
Quarter: 2023Q4

REPORT INFORMATION
  Report Type: Spontaneous
  Country: CA (occurrence: CA)
  Receive Date: 20231117
  Receipt Date: 20231117
  Transmission Date: 20240110
  Serious: Yes (Hospitalization, Congenital Anomaly)
  Sender: FDA-Public Use
  Company Number: CA-JNJFOC-20231125077

PATIENT

DRUGS (5)
  1. ACETAMINOPHEN [Suspect]
     Active Substance: ACETAMINOPHEN
     Indication: Foetal exposure during pregnancy
     Route: 064
  2. CODEINE [Suspect]
     Active Substance: CODEINE
     Indication: Foetal exposure during pregnancy
     Route: 064
  3. DIMENHYDRINATE [Suspect]
     Active Substance: DIMENHYDRINATE
     Indication: Foetal exposure during pregnancy
     Route: 064
  4. HEROIN [Suspect]
     Active Substance: DIAMORPHINE
     Indication: Foetal exposure during pregnancy
     Route: 064
  5. METHADONE [Suspect]
     Active Substance: METHADONE HYDROCHLORIDE
     Indication: Foetal exposure during pregnancy
     Route: 064

REACTIONS (2)
  - Ductus arteriosus premature closure [Recovered/Resolved]
  - Foetal exposure during pregnancy [Recovered/Resolved]
